FAERS Safety Report 13175530 (Version 1)
Quarter: 2017Q1

REPORT INFORMATION
  Report Type: Spontaneous
  Country: US (occurrence: US)
  Receive Date: 20170201
  Receipt Date: 20170201
  Transmission Date: 20170428
  Serious: No
  Sender: FDA-Public Use
  Company Number: US-009507513-1702USA000221

PATIENT
  Age: 57 Year
  Sex: Male

DRUGS (1)
  1. SINEMET [Suspect]
     Active Substance: CARBIDOPA\LEVODOPA
     Indication: PARKINSON^S DISEASE
     Dosage: 1 TABLET/3 TIMES A DAY
     Route: 048
     Dates: start: 201611

REACTIONS (2)
  - Palpitations [Not Recovered/Not Resolved]
  - Blood magnesium increased [Not Recovered/Not Resolved]

NARRATIVE: CASE EVENT DATE: 201611
